FAERS Safety Report 8848238 (Version 2)
Quarter: 2015Q3

REPORT INFORMATION
  Report Type: Report from Study
  Country: US (occurrence: US)
  Receive Date: 20121018
  Receipt Date: 20150824
  Transmission Date: 20151125
  Serious: Yes (Other)
  Sender: FDA-Public Use
  Company Number: US-ROCHE-1139694

PATIENT
  Sex: Male

DRUGS (12)
  1. NUTROPIN [Suspect]
     Active Substance: SOMATROPIN
     Route: 065
  2. NUTROPIN [Suspect]
     Active Substance: SOMATROPIN
     Route: 065
  3. SYNTHROID [Concomitant]
     Active Substance: LEVOTHYROXINE SODIUM
     Route: 065
  4. PROTROPIN [Suspect]
     Active Substance: SOMATREM
     Indication: HYPOPITUITARISM
     Dosage: 0.18 CC (0.247 MG/KG/WEEK)
     Route: 058
     Dates: start: 19971215
  5. PROTROPIN [Suspect]
     Active Substance: SOMATREM
     Dosage: 0.26 CC
     Route: 058
     Dates: start: 20010219
  6. NUTROPIN [Suspect]
     Active Substance: SOMATROPIN
     Indication: HYPOPITUITARISM
     Dosage: 0.3MG/KG
     Route: 058
  7. NUTROPIN [Suspect]
     Active Substance: SOMATROPIN
     Route: 065
  8. NUTROPIN [Suspect]
     Active Substance: SOMATROPIN
     Dosage: 0.9 MG AND 1 MG
     Route: 065
  9. ADDERALL [Concomitant]
     Active Substance: AMPHETAMINE ASPARTATE\AMPHETAMINE SULFATE\DEXTROAMPHETAMINE SACCHARATE\DEXTROAMPHETAMINE SULFATE
  10. PROTROPIN [Suspect]
     Active Substance: SOMATREM
     Dosage: 0.21 CC (0.3 MG/KG/WEEK)
     Route: 058
     Dates: start: 19991209
  11. NUTROPIN [Suspect]
     Active Substance: SOMATROPIN
     Route: 065
  12. NUTROPIN [Suspect]
     Active Substance: SOMATROPIN
     Route: 065

REACTIONS (7)
  - Arthralgia [Unknown]
  - Bronchitis [Unknown]
  - Pain [Unknown]
  - Pain in extremity [Unknown]
  - Tympanic membrane perforation [Recovered/Resolved]
  - Hyperkeratosis [Unknown]
  - Nasopharyngitis [Unknown]
